FAERS Safety Report 8843914 (Version 1)
Quarter: 2012Q4

REPORT INFORMATION
  Report Type: 
  Country: GB (occurrence: GB)
  Receive Date: 20121016
  Receipt Date: 20121016
  Transmission Date: 20130627
  Serious: Yes (Other)
  Sender: FDA-Public Use
  Company Number: GB-JNJFOC-20121006923

PATIENT
  Sex: Female
  Weight: 3.54 kg

DRUGS (1)
  1. MEBENDAZOLE [Suspect]
     Indication: FOETAL EXPOSURE DURING PREGNANCY
     Route: 064

REACTIONS (3)
  - Foetal hypokinesia [Recovered/Resolved]
  - Postmature baby [Not Recovered/Not Resolved]
  - Maternal drugs affecting foetus [None]
